FAERS Safety Report 24411537 (Version 1)
Quarter: 2024Q4

REPORT INFORMATION
  Report Type: Spontaneous
  Country: US (occurrence: US)
  Receive Date: 20241008
  Receipt Date: 20241008
  Transmission Date: 20250114
  Serious: Yes (Hospitalization, Other)
  Sender: BAYER
  Company Number: US-BAYER-2024A140386

PATIENT
  Age: 98 Year
  Sex: Female

DRUGS (1)
  1. KERENDIA [Suspect]
     Active Substance: FINERENONE

REACTIONS (5)
  - Fall [None]
  - Rib fracture [None]
  - Hospitalisation [None]
  - Pain in extremity [None]
  - Wound [None]

NARRATIVE: CASE EVENT DATE: 20240828
